FAERS Safety Report 12539466 (Version 3)
Quarter: 2016Q3

REPORT INFORMATION
  Report Type: Spontaneous
  Country: JP (occurrence: JP)
  Receive Date: 20160708
  Receipt Date: 20160825
  Transmission Date: 20161109
  Serious: Yes (Death, Other)
  Sender: FDA-Public Use
  Company Number: JP-AMGEN-JPNSP2016088202

PATIENT
  Age: 85 Year
  Sex: Male
  Weight: 62 kg

DRUGS (10)
  1. ALFAROL [Concomitant]
     Active Substance: ALFACALCIDOL
     Indication: HYPOCALCAEMIA
     Dosage: 0.5 MUG, QD
     Route: 048
     Dates: start: 20120803
  2. KREMEZIN [Concomitant]
     Active Substance: ACTIVATED CHARCOAL
     Indication: CHRONIC KIDNEY DISEASE
     Dosage: 2 G, TID
     Route: 048
     Dates: start: 20120604, end: 20130719
  3. NEXAVAR [Concomitant]
     Active Substance: SORAFENIB
     Dosage: UNK
     Dates: start: 20120604
  4. RANMARK [Suspect]
     Active Substance: DENOSUMAB
     Indication: RENAL CANCER
     Dosage: 120 MG, UNK
     Route: 058
     Dates: start: 20120803, end: 20130823
  5. CALCIUM LACTATE [Concomitant]
     Active Substance: CALCIUM LACTATE
     Indication: HYPOCALCAEMIA
     Dosage: 1 G, TID
     Route: 048
     Dates: start: 20120116, end: 20130524
  6. CELECOX [Concomitant]
     Active Substance: CELECOXIB
     Indication: BONE PAIN
     Dosage: 100 MG, BID
     Route: 048
     Dates: start: 20111128, end: 20130405
  7. ZOLEDRONIC ACID [Suspect]
     Active Substance: ZOLEDRONIC ACID
     Indication: PRODUCT USED FOR UNKNOWN INDICATION
     Dosage: UNK
     Route: 065
     Dates: start: 20120604
  8. PREDONINE [Concomitant]
     Active Substance: PREDNISOLONE\PREDNISOLONE ACETATE\PREDNISOLONE SODIUM SUCCINATE
     Indication: PRODUCT USED FOR UNKNOWN INDICATION
     Dosage: 5 MG, BID
     Route: 048
  9. KREMEZIN [Concomitant]
     Active Substance: ACTIVATED CHARCOAL
     Indication: CHRONIC KIDNEY DISEASE
  10. NORVASC [Concomitant]
     Active Substance: AMLODIPINE BESYLATE
     Indication: HYPERTENSION
     Dosage: 5 MG, QD
     Route: 048
     Dates: start: 2006

REACTIONS (2)
  - Osteonecrosis of jaw [Not Recovered/Not Resolved]
  - Pneumonia [Fatal]

NARRATIVE: CASE EVENT DATE: 20130204
